FAERS Safety Report 8791326 (Version 2)
Quarter: 2012Q4

REPORT INFORMATION
  Report Type: Spontaneous
  Country: JP (occurrence: None)
  Receive Date: 20120912
  Receipt Date: 20121009
  Transmission Date: 20130627
  Serious: Yes (Hospitalization)
  Sender: FDA-Public Use
  Company Number: TCI2012A04852

PATIENT
  Age: 95 Year
  Sex: Female

DRUGS (5)
  1. TAKEPRON OD TABLETS 15 (LANSOPRAZOLE) [Suspect]
     Indication: PROPHYLAXIS
     Route: 048
     Dates: start: 20110819, end: 20111226
  2. LOXOPROFEN SODIUM [Concomitant]
  3. ARICEPT D(DONEPEZIL HYDROCHLORIDE) [Concomitant]
  4. MAGNESIUM OXIDE [Concomitant]
  5. CALFALEAD (ALFACALCIDOL) [Concomitant]

REACTIONS (1)
  - Coma [None]
